FAERS Safety Report 8011255-9 (Version None)
Quarter: 2011Q4

REPORT INFORMATION
  Report Type: 
  Country: None (occurrence: None)
  Receive Date: 20111227
  Receipt Date: 20111227
  Transmission Date: 20120403
  Serious: No
  Sender: FDA-Public Use
  Company Number: None

PATIENT
  Age: 44 Year
  Sex: Male
  Weight: 108 kg

DRUGS (4)
  1. VANCOMYCIN HYCHLORIDE [Suspect]
     Indication: EMBOLIC STROKE
     Dosage: 1000MG, 1250MG, 1500MG, 1750MG
     Route: 042
     Dates: start: 20111210, end: 20111223
  2. VANCOMYCIN HYCHLORIDE [Suspect]
     Indication: SEPSIS
     Dosage: 1000MG, 1250MG, 1500MG, 1750MG
     Route: 042
     Dates: start: 20111210, end: 20111223
  3. VANCOMYCIN HYCHLORIDE [Suspect]
     Indication: ENCEPHALOPATHY
     Dosage: 1000MG, 1250MG, 1500MG, 1750MG
     Route: 042
     Dates: start: 20111210, end: 20111223
  4. VANCOMYCIN HYCHLORIDE [Suspect]
     Indication: HYPOXIA
     Dosage: 1000MG, 1250MG, 1500MG, 1750MG
     Route: 042
     Dates: start: 20111210, end: 20111223

REACTIONS (2)
  - CEREBROVASCULAR ACCIDENT [None]
  - DEAFNESS [None]
